FAERS Safety Report 7034816-2 (Version None)
Quarter: 2010Q4

REPORT INFORMATION
  Report Type: 
  Country: None (occurrence: None)
  Receive Date: 20101008
  Receipt Date: 20101001
  Transmission Date: 20110411
  Serious: Yes (Hospitalization)
  Sender: FDA-Public Use
  Company Number: US-ROCHE-721498

PATIENT
  Sex: Female

DRUGS (6)
  1. PEGASYS [Suspect]
     Indication: HEPATITIS C
     Dosage: FORM: PRE-FILLED SYRINGE
     Route: 065
     Dates: start: 20100811
  2. RIBAVIRIN [Suspect]
     Indication: HEPATITIS C
     Dosage: DIVIDED DOSES
     Route: 065
     Dates: start: 20100811
  3. LAMICTAL [Concomitant]
     Indication: BIPOLAR DISORDER
  4. GEODON [Concomitant]
     Indication: BIPOLAR DISORDER
     Dosage: DRUG: GEODAN
  5. SINEQUAN [Concomitant]
     Dosage: DRUG: SENEQUAN
  6. NEURONTIN [Concomitant]

REACTIONS (8)
  - ABNORMAL DREAMS [None]
  - CHILLS [None]
  - DEPRESSION [None]
  - IRRITABILITY [None]
  - PYREXIA [None]
  - RESTLESSNESS [None]
  - ROAD TRAFFIC ACCIDENT [None]
  - SOMNOLENCE [None]
